FAERS Safety Report 7197144-0 (Version None)
Quarter: 2010Q4

REPORT INFORMATION
  Report Type: 
  Country: None (occurrence: None)
  Receive Date: 20101224
  Receipt Date: 20101220
  Transmission Date: 20110411
  Serious: Yes (Death)
  Sender: FDA-Public Use
  Company Number: PHHY2010US87538

PATIENT
  Sex: Male

DRUGS (8)
  1. EXELON [Suspect]
     Dosage: 9.5 MG, UNK
     Route: 062
     Dates: end: 20101206
  2. ADVAIR [Concomitant]
  3. OMEPRAZOLE [Concomitant]
     Dosage: UNK
  4. MIRALAX [Concomitant]
  5. COMBIVENT [Concomitant]
  6. AVODART [Concomitant]
     Dosage: UNK
  7. AMITRIPTYLINE HCL [Concomitant]
     Dosage: UNK
  8. NYSTATIN [Concomitant]

REACTIONS (2)
  - DEATH [None]
  - RASH [None]
